APPROVED DRUG PRODUCT: POTASSIUM CHLORIDE 0.3% IN DEXTROSE 10% AND SODIUM CHLORIDE 0.2% IN PLASTIC CONTAINER
Active Ingredient: DEXTROSE; POTASSIUM CHLORIDE; SODIUM CHLORIDE
Strength: 10GM/100ML;300MG/100ML;200MG/100ML
Dosage Form/Route: INJECTABLE;INJECTION
Application: N019630 | Product #036
Applicant: B BRAUN MEDICAL INC
Approved: Feb 17, 1988 | RLD: No | RS: No | Type: RX